FAERS Safety Report 14817081 (Version 1)
Quarter: 2018Q2

REPORT INFORMATION
  Report Type: Spontaneous
  Country: FR (occurrence: FR)
  Receive Date: 20180426
  Receipt Date: 20180426
  Transmission Date: 20180711
  Serious: Yes (Death, Other)
  Sender: FDA-Public Use
  Company Number: PHHY2018FR073183

PATIENT

DRUGS (24)
  1. ZYLORIC [Interacting]
     Active Substance: ALLOPURINOL
     Dosage: 100 MG, QD
     Route: 048
     Dates: start: 20171029, end: 20171029
  2. HYDREA [Interacting]
     Active Substance: HYDROXYUREA
     Indication: ACUTE MYELOID LEUKAEMIA
     Dosage: 500 MG, BID
     Route: 048
     Dates: start: 20171013, end: 20171021
  3. ATARAX [Concomitant]
     Active Substance: HYDROXYZINE HYDROCHLORIDE
     Indication: PRODUCT USED FOR UNKNOWN INDICATION
     Dosage: UNK
     Route: 065
     Dates: start: 20171025
  4. STILNOX [Concomitant]
     Active Substance: ZOLPIDEM TARTRATE
     Indication: PRODUCT USED FOR UNKNOWN INDICATION
     Route: 065
  5. ZYLORIC [Interacting]
     Active Substance: ALLOPURINOL
     Dosage: 100 MG, QD
     Route: 048
     Dates: start: 20171027, end: 20171027
  6. LASILIX [Interacting]
     Active Substance: FUROSEMIDE
     Dosage: 20 MG, QD
     Route: 048
     Dates: start: 20171022, end: 20171025
  7. VFEND [Interacting]
     Active Substance: VORICONAZOLE
     Indication: BRONCHOPULMONARY ASPERGILLOSIS
     Dosage: 400 MG, BID
     Route: 042
     Dates: start: 20171019, end: 20171024
  8. LASILIX [Interacting]
     Active Substance: FUROSEMIDE
     Indication: HYPERTENSION
     Dosage: 40 MG, QD
     Route: 048
     Dates: start: 20171019, end: 20171021
  9. ZITHROMAX [Interacting]
     Active Substance: AZITHROMYCIN DIHYDRATE
     Indication: PRODUCT USED FOR UNKNOWN INDICATION
     Dosage: 500 MG, UNK (SINGLE)
     Route: 065
     Dates: start: 20171018, end: 20171018
  10. TOPALGIC [Concomitant]
     Indication: PRODUCT USED FOR UNKNOWN INDICATION
     Dosage: UNK
     Route: 065
     Dates: start: 20171025
  11. RENAGEL [Concomitant]
     Active Substance: SEVELAMER HYDROCHLORIDE
     Indication: PRODUCT USED FOR UNKNOWN INDICATION
     Dosage: UNK
     Route: 065
  12. FASTURTEC [Concomitant]
     Active Substance: RASBURICASE
     Indication: PRODUCT USED FOR UNKNOWN INDICATION
     Dosage: UNK
     Route: 065
     Dates: start: 20171014, end: 20171014
  13. HYDROCORTISONE. [Interacting]
     Active Substance: HYDROCORTISONE
     Indication: ACUTE MYELOID LEUKAEMIA
     Dosage: 100 MG, QD
     Route: 042
     Dates: start: 20171020, end: 20171027
  14. ZITHROMAX [Interacting]
     Active Substance: AZITHROMYCIN DIHYDRATE
     Dosage: 250 MG, QD
     Route: 048
     Dates: start: 20171018, end: 20171025
  15. CORTANCYL [Concomitant]
     Active Substance: PREDNISONE
     Indication: PRODUCT USED FOR UNKNOWN INDICATION
     Dosage: UNK
     Route: 065
  16. TRIMEBUTINE ARROW [Interacting]
     Active Substance: TRIMEBUTINE MALEATE
     Indication: GASTROINTESTINAL DISORDER
     Dosage: 100 MG, BID
     Route: 048
     Dates: start: 20171022, end: 20171025
  17. VFEND [Interacting]
     Active Substance: VORICONAZOLE
     Dosage: 200 MG, BID
     Route: 065
     Dates: start: 20171025, end: 20171025
  18. POLARAMINE [Interacting]
     Active Substance: DEXCHLORPHENIRAMINE MALEATE
     Indication: ACUTE MYELOID LEUKAEMIA
     Dosage: 5 MG, QD
     Route: 042
     Dates: start: 20171020, end: 20171027
  19. CEFTRIAXONE. [Suspect]
     Active Substance: CEFTRIAXONE
     Indication: URINARY TRACT INFECTION
     Dosage: 1 G, BID
     Route: 042
     Dates: start: 20171016, end: 20171025
  20. ICLUSIG [Interacting]
     Active Substance: PONATINIB
     Indication: ACUTE MYELOID LEUKAEMIA
     Dosage: 45 MG, QD
     Route: 048
     Dates: start: 20171017, end: 20171025
  21. MOVICOL [Concomitant]
     Active Substance: POLYETHYLENE GLYCOL 3350\POTASSIUM CHLORIDE\SODIUM BICARBONATE\SODIUM CHLORIDE
     Indication: PRODUCT USED FOR UNKNOWN INDICATION
     Dosage: UNK
     Route: 065
  22. SPASFON (PHLOROGLUCINOL) [Concomitant]
     Active Substance: PHLOROGLUCINOL
     Indication: PRODUCT USED FOR UNKNOWN INDICATION
     Dosage: UNK
     Route: 065
  23. BISOCE [Interacting]
     Active Substance: BISOPROLOL
     Indication: TACHYCARDIA
     Dosage: 5 MG, QD
     Route: 048
     Dates: start: 20171015, end: 20171029
  24. ZYLORIC [Interacting]
     Active Substance: ALLOPURINOL
     Indication: TUMOUR LYSIS SYNDROME
     Dosage: 100 MG, BID
     Route: 048
     Dates: start: 20171015, end: 20171026

REACTIONS (5)
  - Drug level increased [Fatal]
  - Hepatitis [Fatal]
  - Hepatic failure [Fatal]
  - Off label use [Unknown]
  - Drug interaction [Fatal]

NARRATIVE: CASE EVENT DATE: 20171017
